FAERS Safety Report 5335818-4 (Version None)
Quarter: 2007Q2

REPORT INFORMATION
  Report Type: 
  Country: None (occurrence: None)
  Receive Date: 20070322
  Receipt Date: 20061030
  Transmission Date: 20071010
  Serious: No
  Sender: FDA-Public Use
  Company Number: US-CVT-062205

PATIENT
  Age: 51 Year
  Sex: Female

DRUGS (13)
  1. RANEXA [Suspect]
     Indication: ANGINA PECTORIS
     Dates: start: 20061020
  2. RANEXA [Suspect]
     Indication: ANGINA PECTORIS
     Dates: start: 20061031
  3. LOPRESSOR [Suspect]
     Dates: end: 20060101
  4. LOPRESSOR [Suspect]
     Dates: end: 20060101
  5. NORVASC [Concomitant]
  6. HYDRALAZINE HCL [Concomitant]
  7. IMDUR [Concomitant]
  8. LASIX [Concomitant]
  9. POTASSIUM (POTASSIUM) [Concomitant]
  10. PLAVIX [Concomitant]
  11. BENICAR (OLMESARTAN MEDOXIMIL) [Concomitant]
  12. XANAX [Concomitant]
  13. NOVOLOG MIX (INSULIN ASPART, INSULIN ASPART PROTAMINE) [Concomitant]

REACTIONS (5)
  - BLOOD PRESSURE INCREASED [None]
  - FEELING HOT [None]
  - HEADACHE [None]
  - HEART RATE INCREASED [None]
  - LIBIDO INCREASED [None]
